FAERS Safety Report 5121112-3 (Version None)
Quarter: 2006Q4

REPORT INFORMATION
  Report Type: 
  Country: None (occurrence: None)
  Receive Date: 20061002
  Receipt Date: 20060911
  Transmission Date: 20070319
  Serious: Yes (Hospitalization)
  Sender: FDA-Public Use
  Company Number: US200609002821

PATIENT
  Age: 56 Year
  Sex: Female

DRUGS (27)
  1. CYMBALTA [Suspect]
  2. XOPENEX [Concomitant]
  3. NYSTATIN [Concomitant]
  4. ACYCLOVIR [Concomitant]
  5. AMBIEN [Concomitant]
  6. ELAVIL [Concomitant]
  7. ASPIRIN [Concomitant]
  8. CALTRATE PLUS [Concomitant]
  9. MIACALCIN [Concomitant]
  10. FLOVENT [Concomitant]
  11. HYDROCHLOROTHIAZIDE [Concomitant]
  12. KLONOPIN [Concomitant]
  13. NEXIUM [Concomitant]
  14. SYNTHROID [Concomitant]
  15. TYLOX (OXYCODONE HYDROCHLORIDE, PARACETAMOL) [Concomitant]
  16. ULTRAM [Concomitant]
  17. CYANOCOBALAMIN [Concomitant]
  18. ZOLOFT [Concomitant]
  19. AROMASIN [Concomitant]
  20. PERI-COLACE [Concomitant]
  21. CITRUCEL (METHYLCELLULOSE) [Concomitant]
  22. TENORMIN [Concomitant]
  23. MILK OF MAGNESIA TAB [Concomitant]
  24. CLARITIN [Concomitant]
  25. ATORVASTATIN CALCIUM [Concomitant]
  26. PREGABALIN (PREGABALIN) [Concomitant]
  27. .............................. [Concomitant]

REACTIONS (4)
  - BRONCHITIS [None]
  - DRUG INTERACTION [None]
  - MOTOR DYSFUNCTION [None]
  - PNEUMONIA [None]
